FAERS Safety Report 17764735 (Version 1)
Quarter: 2020Q2

REPORT INFORMATION
  Report Type: Spontaneous
  Country: CA (occurrence: CA)
  Receive Date: 20200511
  Receipt Date: 20200511
  Transmission Date: 20200714
  Serious: Yes (Hospitalization, Other)
  Sender: FDA-Public Use
  Company Number: CA-DRREDDYS-USA/CAN/20/0122731

PATIENT
  Age: 39 Year
  Sex: Female

DRUGS (3)
  1. ZOLEDRONIC ACID. [Suspect]
     Active Substance: ZOLEDRONIC ACID
     Indication: LUNG NEOPLASM MALIGNANT
     Route: 065
  2. ZOLEDRONIC ACID. [Suspect]
     Active Substance: ZOLEDRONIC ACID
     Indication: NON-SMALL CELL LUNG CANCER METASTATIC
     Route: 042
  3. PLACEBO [Suspect]
     Active Substance: UNSPECIFIED INGREDIENT
     Indication: PRODUCT USED FOR UNKNOWN INDICATION
     Route: 065

REACTIONS (18)
  - Pneumonia [Recovered/Resolved]
  - Pain [Recovered/Resolved]
  - Parainfluenzae virus infection [Recovered/Resolved]
  - Influenza [Recovered/Resolved]
  - Rash [Recovered/Resolved]
  - Gingival ulceration [Recovered/Resolved]
  - Oropharyngeal pain [Recovered/Resolved]
  - Influenza like illness [Recovered/Resolved]
  - Urticaria [Recovered/Resolved]
  - Ear pain [Recovered/Resolved]
  - Gingival pain [Recovered/Resolved]
  - Malaise [Recovered/Resolved]
  - Hypotension [Recovered/Resolved]
  - Myalgia [Recovered/Resolved]
  - Pyrexia [Recovered/Resolved]
  - Blood pressure systolic increased [Recovered/Resolved]
  - Fatigue [Recovered/Resolved]
  - Oral pain [Recovered/Resolved]
